FAERS Safety Report 8232020-3 (Version None)
Quarter: 2012Q1

REPORT INFORMATION
  Report Type: 
  Country: None (occurrence: None)
  Receive Date: 20120323
  Receipt Date: 20120115
  Transmission Date: 20120608
  Serious: Yes (Other)
  Sender: FDA-Public Use
  Company Number: CA-JNJFOC-20120205671

PATIENT
  Age: 59 Year
  Sex: Female
  Weight: 74.84 kg

DRUGS (7)
  1. TYLENOL-500 [Suspect]
     Indication: NECK PAIN
     Route: 048
     Dates: start: 20050101
  2. TYLENOL W/ CODEINE NO. 3 [Suspect]
     Indication: NECK PAIN
     Route: 048
     Dates: start: 20050101
  3. EXTRA STRENGTH TYLENOL [Suspect]
     Route: 048
  4. NEXIUM [Concomitant]
  5. TYLENOL W/ CODEINE NO. 4 [Suspect]
     Indication: NECK PAIN
     Route: 048
     Dates: start: 20050101
  6. TYLENOL-500 [Suspect]
     Indication: PAIN MANAGEMENT
     Route: 048
     Dates: start: 20050101
  7. EXTRA STRENGTH TYLENOL [Suspect]
     Indication: NECK PAIN
     Route: 048
     Dates: start: 20050101

REACTIONS (2)
  - HEPATIC CYST [None]
  - ABDOMINAL PAIN [None]
